FAERS Safety Report 23230657 (Version 2)
Quarter: 2023Q4

REPORT INFORMATION
  Report Type: Report from Study
  Country: SI (occurrence: SI)
  Receive Date: 20231127
  Receipt Date: 20231212
  Transmission Date: 20240110
  Serious: Yes (Hospitalization, Other)
  Sender: FDA-Public Use
  Company Number: SI-TAKEDA-2023TUS113518

PATIENT
  Age: 53 Year
  Sex: Female

DRUGS (1)
  1. MOBOCERTINIB [Suspect]
     Active Substance: MOBOCERTINIB
     Indication: Product used for unknown indication
     Dosage: UNK
     Route: 065
     Dates: end: 20231110

REACTIONS (4)
  - Metastases to central nervous system [Unknown]
  - Metastases to bone [Unknown]
  - Vomiting [Recovered/Resolved]
  - Headache [Recovered/Resolved]

NARRATIVE: CASE EVENT DATE: 20231109
